FAERS Safety Report 19697537 (Version 1)
Quarter: 2021Q3

REPORT INFORMATION
  Report Type: Report from Study
  Country: US (occurrence: US)
  Receive Date: 20210813
  Receipt Date: 20210813
  Transmission Date: 20211014
  Serious: Yes (Other)
  Sender: FDA-Public Use
  Company Number: US-ASTELLAS-2019US004927

PATIENT
  Age: 78 Year
  Sex: Male

DRUGS (1)
  1. ENZALUTAMIDE [Suspect]
     Active Substance: ENZALUTAMIDE
     Indication: PRODUCT USED FOR UNKNOWN INDICATION
     Route: 065
     Dates: start: 201811

REACTIONS (7)
  - Decreased appetite [Unknown]
  - Optic ischaemic neuropathy [Unknown]
  - Insomnia [Unknown]
  - Dysphonia [Unknown]
  - Foreign body in throat [Unknown]
  - Fatigue [Unknown]
  - Throat irritation [Unknown]

NARRATIVE: CASE EVENT DATE: 20181115
